FAERS Safety Report 8465060-X (Version None)
Quarter: 2012Q2

REPORT INFORMATION
  Report Type: 
  Country: None (occurrence: None)
  Receive Date: 20120626
  Receipt Date: 20120619
  Transmission Date: 20120825
  Serious: Yes (Other)
  Sender: FDA-Public Use
  Company Number: US-BAYER-2012-021951

PATIENT
  Age: 48 Year
  Sex: Female

DRUGS (7)
  1. YASMIN [Suspect]
     Indication: PRODUCT USED FOR UNKNOWN INDICATION
     Dosage: UNK
     Dates: start: 20070101
  2. DROSPIRENONE AND ETHINYL ESTRADIOL [Suspect]
     Indication: PRODUCT USED FOR UNKNOWN INDICATION
     Dosage: UNK
     Dates: start: 20070101
  3. HYDROCODONE BITARTRATE [Concomitant]
     Dosage: UNK
     Dates: start: 20091001
  4. IMITREX [Concomitant]
     Dosage: UNK UNK, PRN
     Dates: start: 20091001
  5. VICODIN [Concomitant]
     Dosage: UNK
     Dates: start: 20091001
  6. NAPROXEN [Concomitant]
     Dosage: UNK
     Dates: start: 20091001
  7. FLEXERIL [Concomitant]
     Dosage: UNK
     Dates: start: 20091001

REACTIONS (3)
  - CHOLECYSTITIS CHRONIC [None]
  - GALLBLADDER INJURY [None]
  - PAIN [None]
